FAERS Safety Report 15475472 (Version 8)
Quarter: 2020Q2

REPORT INFORMATION
  Report Type: Report from Study
  Country: US (occurrence: US)
  Receive Date: 20181008
  Receipt Date: 20200603
  Transmission Date: 20200713
  Serious: Yes (Hospitalization, Other)
  Sender: FDA-Public Use
  Company Number: US-ACTELION-A-US2017-151996

PATIENT
  Sex: Female

DRUGS (3)
  1. OPSUMIT [Suspect]
     Active Substance: MACITENTAN
     Indication: PULMONARY ARTERIAL HYPERTENSION
     Dosage: 10 MG, QD
     Route: 048
     Dates: start: 20170301
  2. VITAMIN C [Concomitant]
     Active Substance: ASCORBIC ACID
     Dosage: UNK
     Dates: start: 20180728
  3. IRON [Concomitant]
     Active Substance: IRON

REACTIONS (10)
  - Sepsis [Unknown]
  - Dialysis [Unknown]
  - Hospitalisation [Unknown]
  - Fluid retention [Unknown]
  - Dialysis related complication [Unknown]
  - Swelling [Unknown]
  - Localised infection [Unknown]
  - Blood pressure fluctuation [Unknown]
  - Hypotension [Unknown]
  - Diabetes mellitus [Unknown]
